FAERS Safety Report 16133544 (Version 2)
Quarter: 2019Q2

REPORT INFORMATION
  Report Type: Report from Study
  Country: US (occurrence: US)
  Receive Date: 20190329
  Receipt Date: 20190401
  Transmission Date: 20190711
  Serious: No
  Sender: FDA-Public Use
  Company Number: US-ROCHE-2290703

PATIENT
  Sex: Female

DRUGS (1)
  1. OCREVUS [Suspect]
     Active Substance: OCRELIZUMAB
     Indication: PRODUCT USED FOR UNKNOWN INDICATION
     Dosage: FORM STRENGHT: 300/10ML?19/MAR/2019: SECOND INFUSION.
     Route: 042
     Dates: start: 201902

REACTIONS (3)
  - Tachycardia [Recovered/Resolved]
  - Fatigue [Recovered/Resolved]
  - Upper respiratory tract infection [Unknown]
